FAERS Safety Report 21728998 (Version 1)
Quarter: 2022Q4

REPORT INFORMATION
  Report Type: Spontaneous
  Country: AU (occurrence: AU)
  Receive Date: 20221214
  Receipt Date: 20221214
  Transmission Date: 20230113
  Serious: Yes (Other)
  Sender: FDA-Public Use
  Company Number: AU-NAPPMUNDI-GBR-2022-0103686

PATIENT
  Age: 83 Year
  Sex: Female

DRUGS (5)
  1. MS CONTIN [Suspect]
     Active Substance: MORPHINE SULFATE
     Indication: Neoplasm malignant
     Dosage: 30 MILLIGRAM, BID, DURING MORNING AND DURING THE NIGHT, WENT THROUGH 28 TABLETS AND HAD LAST PILL A
     Route: 065
  2. MS CONTIN [Suspect]
     Active Substance: MORPHINE SULFATE
     Dosage: 15 MILLIGRAM, IN THE NIGHT
     Route: 065
     Dates: start: 20221207
  3. MS CONTIN [Suspect]
     Active Substance: MORPHINE SULFATE
     Dosage: 15 MILLIGRAM, IN THE MORNING
     Route: 065
     Dates: start: 20221208
  4. MELATONIN [Concomitant]
     Active Substance: MELATONIN
     Indication: Insomnia
     Dosage: UNK
  5. SEROQUEL [Concomitant]
     Active Substance: QUETIAPINE FUMARATE
     Indication: Depression
     Dosage: 25 MILLIGRAM, ONE AT NIGHT, SINCE FROM AGE OF 20 YEARS OLD

REACTIONS (12)
  - Hallucination [Unknown]
  - Suicidal behaviour [Unknown]
  - Dizziness [Unknown]
  - Illness [Unknown]
  - Hyperhidrosis [Unknown]
  - Hot flush [Unknown]
  - Mood altered [Unknown]
  - Peripheral swelling [Unknown]
  - Insomnia [Unknown]
  - Food aversion [Unknown]
  - Derealisation [Unknown]
  - Decreased appetite [Unknown]
